FAERS Safety Report 9408527 (Version 1)
Quarter: 2013Q3

REPORT INFORMATION
  Report Type: Spontaneous
  Country: US (occurrence: US)
  Receive Date: 20130718
  Receipt Date: 20130718
  Transmission Date: 20140515
  Serious: No
  Sender: FDA-Public Use
  Company Number: US-ASTELLAS-2013US006038

PATIENT
  Sex: Female

DRUGS (2)
  1. VESICARE [Suspect]
     Indication: NEUROGENIC BLADDER
     Dosage: 10 MG, UID/QD
     Route: 048
     Dates: start: 20130522
  2. OXYBUTYNIN [Concomitant]
     Indication: PRODUCT USED FOR UNKNOWN INDICATION
     Dosage: UNK
     Route: 065
     Dates: end: 20130522

REACTIONS (1)
  - Off label use [Unknown]
